FAERS Safety Report 14934105 (Version 1)
Quarter: 2018Q2

REPORT INFORMATION
  Report Type: Spontaneous
  Country: US (occurrence: US)
  Receive Date: 20180505
  Receipt Date: 20180505
  Transmission Date: 20180711
  Serious: No
  Sender: FDA-Public Use
  Company Number: None

PATIENT
  Age: 76 Year
  Sex: Female
  Weight: 72 kg

DRUGS (14)
  1. AMLODIPINE [Concomitant]
     Active Substance: AMLODIPINE BESYLATE
  2. IRBESARTAN. [Concomitant]
     Active Substance: IRBESARTAN
  3. CITALOPRAM [Concomitant]
     Active Substance: CITALOPRAM HYDROBROMIDE
  4. CENTRUM SILVER [Concomitant]
     Active Substance: MINERALS\VITAMINS
  5. ZOLPIDEM10MG MFG TEVA [Suspect]
     Active Substance: ZOLPIDEM TARTRATE
     Indication: SLEEP DISORDER
     Dosage: ?          QUANTITY:1 TABLET(S);?
     Route: 048
  6. LOW DOSE ASPIRIN [Concomitant]
     Active Substance: ASPIRIN
  7. TYLENOL [Concomitant]
     Active Substance: ACETAMINOPHEN
  8. TRIAMTERENE/HCT [Concomitant]
  9. FLAXSEED [Concomitant]
     Active Substance: FLAX SEED
  10. CALCIUM [Concomitant]
     Active Substance: CALCIUM
  11. GLUCOSAMINE [Concomitant]
     Active Substance: GLUCOSAMINE
  12. IBUPROFEN. [Concomitant]
     Active Substance: IBUPROFEN
  13. ATENOLOL. [Concomitant]
     Active Substance: ATENOLOL
  14. TURMERIC [Concomitant]
     Active Substance: HERBALS\TURMERIC

REACTIONS (5)
  - Inability to afford medication [None]
  - Product formulation issue [None]
  - Drug ineffective [None]
  - Product quality issue [None]
  - Initial insomnia [None]

NARRATIVE: CASE EVENT DATE: 20180101
